FAERS Safety Report 16862871 (Version 2)
Quarter: 2019Q4

REPORT INFORMATION
  Report Type: Report from Study
  Country: US (occurrence: US)
  Receive Date: 20190927
  Receipt Date: 20191001
  Transmission Date: 20200122
  Serious: No
  Sender: FDA-Public Use
  Company Number: PHEH2019US039789

PATIENT
  Sex: Female
  Weight: 28 kg

DRUGS (1)
  1. ILARIS [Suspect]
     Active Substance: CANAKINUMAB
     Indication: JUVENILE IDIOPATHIC ARTHRITIS
     Dosage: 112.5 MG, QMO
     Route: 058
     Dates: start: 20190922

REACTIONS (5)
  - Nasal congestion [Unknown]
  - Injection site swelling [Unknown]
  - Rhinorrhoea [Unknown]
  - Injection site pain [Unknown]
  - Injection site warmth [Unknown]
